FAERS Safety Report 9344307 (Version 1)
Quarter: 2013Q2

REPORT INFORMATION
  Report Type: Spontaneous
  Country: FR (occurrence: FR)
  Receive Date: 20130612
  Receipt Date: 20130612
  Transmission Date: 20140414
  Serious: Yes (Hospitalization)
  Sender: FDA-Public Use
  Company Number: FR-ASTRAZENECA-2013SE40970

PATIENT
  Age: 27555 Day
  Sex: Male

DRUGS (6)
  1. TENORMINE [Suspect]
     Route: 048
     Dates: start: 2012, end: 20130405
  2. UVEDOSE [Concomitant]
  3. SERESTA [Concomitant]
  4. EUPHYLLINE [Concomitant]
  5. INEGY [Concomitant]
  6. ALDACTAZINE [Concomitant]

REACTIONS (2)
  - Fall [Recovered/Resolved]
  - Sinus bradycardia [Recovered/Resolved]
